FAERS Safety Report 12695374 (Version 1)
Quarter: 2016Q3

REPORT INFORMATION
  Report Type: Spontaneous
  Country: JP (occurrence: JP)
  Receive Date: 20160829
  Receipt Date: 20160829
  Transmission Date: 20161109
  Serious: Yes (Death)
  Sender: FDA-Public Use
  Company Number: JP-JNJFOC-20160806197

PATIENT
  Age: 67 Year
  Sex: Male

DRUGS (7)
  1. CALONAL [Concomitant]
     Active Substance: ACETAMINOPHEN
     Indication: NEOPLASM MALIGNANT
     Route: 065
     Dates: start: 20160803
  2. RISPERDAL [Suspect]
     Active Substance: RISPERIDONE
     Indication: RESTLESSNESS
     Dosage: DOSE: 0.5 MG TO 1.5 MG
     Route: 048
     Dates: start: 20160728, end: 20160803
  3. FENTOS [Concomitant]
     Active Substance: FENTANYL
     Route: 062
  4. RISPERDAL [Suspect]
     Active Substance: RISPERIDONE
     Indication: HALLUCINATION
     Dosage: DOSE: 0.5 MG TO 1.5 MG
     Route: 048
     Dates: start: 20160728, end: 20160803
  5. OXINORM [Concomitant]
     Active Substance: OXYCODONE HYDROCHLORIDE
     Route: 048
     Dates: end: 20160802
  6. MORPHINE HYDROCHLORIDE TRIHYDRATE [Concomitant]
     Indication: NEOPLASM MALIGNANT
     Route: 054
     Dates: end: 20160802
  7. OXYCODONE [Concomitant]
     Active Substance: OXYCODONE
     Route: 048
     Dates: end: 20160802

REACTIONS (7)
  - Inappropriate schedule of drug administration [Unknown]
  - Memory impairment [Unknown]
  - Off label use [Unknown]
  - Hallucination [Recovered/Resolved]
  - Product use issue [Unknown]
  - Abnormal behaviour [Recovered/Resolved]
  - Neoplasm malignant [Fatal]

NARRATIVE: CASE EVENT DATE: 20160728
